FAERS Safety Report 8368257-2 (Version None)
Quarter: 2012Q2

REPORT INFORMATION
  Report Type: 
  Country: None (occurrence: None)
  Receive Date: 20120517
  Receipt Date: 20120511
  Transmission Date: 20120825
  Serious: Yes (Hospitalization, Other)
  Sender: FDA-Public Use
  Company Number: US-RB-040360-12

PATIENT
  Age: 35 Year
  Sex: Female

DRUGS (2)
  1. SUBOXONE [Suspect]
     Indication: PRODUCT USED FOR UNKNOWN INDICATION
     Dosage: UNKNOWN DOSAGE DETAILS
     Route: 065
  2. SUBUTEX [Suspect]
     Indication: PRODUCT USED FOR UNKNOWN INDICATION
     Dosage: UNKNOWN DOSAGE DETAILS
     Route: 065

REACTIONS (9)
  - HEAD INJURY [None]
  - ABDOMINAL DISCOMFORT [None]
  - DRUG DEPENDENCE [None]
  - SUBSTANCE ABUSE [None]
  - GRAND MAL CONVULSION [None]
  - MENSTRUAL DISORDER [None]
  - THROAT TIGHTNESS [None]
  - INSOMNIA [None]
  - DIARRHOEA [None]
